FAERS Safety Report 25524862 (Version 2)
Quarter: 2025Q3

REPORT INFORMATION
  Report Type: Spontaneous
  Country: US (occurrence: US)
  Receive Date: 20250707
  Receipt Date: 20250717
  Transmission Date: 20251021
  Serious: Yes (Death, Hospitalization)
  Sender: TEVA
  Company Number: US-TEVA-VS-3347769

PATIENT
  Age: 64 Year
  Sex: Female

DRUGS (4)
  1. AMLODIPINE [Suspect]
     Active Substance: AMLODIPINE BESYLATE
     Indication: Suicide attempt
     Route: 065
  2. SERTRALINE [Concomitant]
     Active Substance: SERTRALINE HYDROCHLORIDE
     Indication: Depression
     Route: 048
  3. APIXABAN [Interacting]
     Active Substance: APIXABAN
     Indication: Suicide attempt
     Route: 065
  4. TORSEMIDE [Interacting]
     Active Substance: TORSEMIDE
     Indication: Suicide attempt
     Route: 065

REACTIONS (7)
  - Intentional overdose [Fatal]
  - Dizziness [Unknown]
  - Acute kidney injury [Fatal]
  - Haemodynamic instability [Fatal]
  - Toxicity to various agents [Fatal]
  - Completed suicide [Fatal]
  - Drug interaction [Fatal]
